FAERS Safety Report 4319496-9 (Version None)
Quarter: 2004Q1

REPORT INFORMATION
  Report Type: 
  Country: None (occurrence: None)
  Receive Date: 20040319
  Receipt Date: 20040304
  Transmission Date: 20041129
  Serious: Yes (Other)
  Sender: FDA-Public Use
  Company Number: PHEH2004US02696

PATIENT
  Age: 69 Year
  Sex: Male

DRUGS (3)
  1. ZOMETA [Suspect]
     Indication: PROPHYLAXIS
     Dosage: 4 MG, QMO
     Route: 042
     Dates: start: 20020101, end: 20031201
  2. HYDROCORTISONE [Concomitant]
     Dosage: 20 MG, QD
     Dates: start: 20010901, end: 20020301
  3. NIZORAL [Concomitant]
     Dates: start: 20030701

REACTIONS (2)
  - LOCALISED INFECTION [None]
  - OSTEONECROSIS [None]
